FAERS Safety Report 4833981-2 (Version None)
Quarter: 2005Q4

REPORT INFORMATION
  Report Type: 
  Country: None (occurrence: None)
  Receive Date: 20051118
  Receipt Date: 20051118
  Transmission Date: 20060501
  Serious: Yes (Other)
  Sender: FDA-Public Use
  Company Number: None

PATIENT
  Age: 79 Year
  Sex: Male
  Weight: 95.4 kg

DRUGS (14)
  1. OMEPRAZOLE [Suspect]
  2. PANTOPRAZOLE [Concomitant]
  3. INFLUENZA VIRUS VACCINE [Concomitant]
  4. ALBUTEROL MDI INH [Concomitant]
  5. SIMVASTATIN [Concomitant]
  6. BISACODYL [Concomitant]
  7. TRIAMCINOLONE ACETONIDE [Concomitant]
  8. SELENIUM SULFIDE LOTION/SHAMPOO [Concomitant]
  9. WARFARIN SODIUM [Concomitant]
  10. METOPROLOL SUCCINATE [Concomitant]
  11. LISINOPRIL [Concomitant]
  12. GEMFIBROZIL [Suspect]
  13. MILK OF MAGNESIA TAB [Concomitant]
  14. ACETAMINOPRHEN [Concomitant]

REACTIONS (1)
  - DIARRHOEA [None]
